FAERS Safety Report 13855207 (Version 4)
Quarter: 2021Q2

REPORT INFORMATION
  Report Type: Other
  Country: FR (occurrence: FR)
  Receive Date: 20170810
  Receipt Date: 20210607
  Transmission Date: 20210716
  Serious: Yes (Hospitalization)
  Sender: FDA-Public Use
  Company Number: FR-INCYTE CORPORATION-2017IN006696

PATIENT

DRUGS (9)
  1. JAKAVI [Suspect]
     Active Substance: RUXOLITINIB
     Dosage: 5 MG, QD
     Route: 048
     Dates: start: 20170612
  2. JAKAVI [Suspect]
     Active Substance: RUXOLITINIB
     Indication: MYELOFIBROSIS
     Dosage: 15 MG, BID (30 MILLIGRAM)
     Route: 048
     Dates: start: 201611, end: 20170530
  3. PYOSTACINE [Concomitant]
     Active Substance: PRISTINAMYCIN
     Indication: INFLAMMATION
  4. PYOSTACINE [Concomitant]
     Active Substance: PRISTINAMYCIN
     Indication: SKIN LESION
     Dosage: UNK
     Route: 065
  5. CEFTRIAXONE. [Concomitant]
     Active Substance: CEFTRIAXONE
     Indication: SKIN LESION
  6. VIDAZA [Suspect]
     Active Substance: AZACITIDINE
     Indication: MYELOFIBROSIS
     Dosage: 111.75 MG, QMO  (2 X 7 DAYS PER MONTH)
     Route: 058
     Dates: start: 20170424, end: 20170531
  7. VIDAZA [Suspect]
     Active Substance: AZACITIDINE
     Dosage: 111.75 MG, QMO  (SECOND CYCLE OF REGIMEN)
     Route: 058
     Dates: start: 20170522, end: 20170711
  8. CEFTRIAXONE. [Concomitant]
     Active Substance: CEFTRIAXONE
     Indication: RHINITIS
     Dosage: UNK
     Route: 065
     Dates: start: 201704, end: 201705
  9. PYOSTACINE [Concomitant]
     Active Substance: PRISTINAMYCIN
     Indication: SELF-MEDICATION

REACTIONS (1)
  - Skin necrosis [Recovered/Resolved]

NARRATIVE: CASE EVENT DATE: 20170529
